FAERS Safety Report 7245648-4 (Version None)
Quarter: 2011Q1

REPORT INFORMATION
  Report Type: 
  Country: None (occurrence: None)
  Receive Date: 20110126
  Receipt Date: 20110118
  Transmission Date: 20110831
  Serious: Yes (Hospitalization)
  Sender: FDA-Public Use
  Company Number: US-ASTRAZENECA-2011SE03310

PATIENT
  Age: 40 Year
  Sex: Female

DRUGS (5)
  1. SEROQUEL [Suspect]
     Indication: BIPOLAR DISORDER
     Route: 048
  2. VALTREX [Concomitant]
     Dosage: AS REQUIRED
     Route: 048
  3. LEVOTHYROXINE SODIUM [Concomitant]
     Dosage: AS REQUIRED
     Route: 048
  4. VISTARIL [Concomitant]
     Dosage: AS REQUIRED
     Route: 048
  5. DEPAKOTE [Concomitant]
     Route: 048

REACTIONS (2)
  - TACHYPHRENIA [None]
  - PHOBIA [None]
